FAERS Safety Report 8439182 (Version 2)
Quarter: 2013Q2

REPORT INFORMATION
  Report Type: Spontaneous
  Country: US (occurrence: None)
  Receive Date: 20120104
  Receipt Date: 20120508
  Transmission Date: 20140414
  Serious: No
  Sender: FDA-Public Use
  Company Number: 2011HGS-002759

PATIENT
  Age: 74 Year
  Sex: Female
  Weight: 72.12 kg

DRUGS (24)
  1. BENLYSTA [Suspect]
     Indication: SYSTEMIC LUPUS ERYTHEMATOSUS
     Route: 041
     Dates: start: 20110725
  2. METHOTREXATE [Concomitant]
  3. NEXIUM [Concomitant]
  4. PRIMIDONE (PRIMIDONE) (PRIMIDONE) [Concomitant]
  5. ATENOLOL [Concomitant]
  6. CHLORZOSAZONE (CHLORZOXAZONE) (CHLORZOXAZONE) [Concomitant]
  7. LEXAPRO (ESCITALOPRAM OXALATE) (ESCITALOPRAM OXALATE) [Concomitant]
  8. ENABLEX (DARIFENACIN) [Concomitant]
  9. FENOFIBRATE [Concomitant]
  10. HYDROXYCHLOROQUINE (HYDROXYCHLOROQUINE) (HYDROXYCHLOROQUINE) [Concomitant]
  11. LISINOPRIL [Concomitant]
  12. MELOXICAM [Concomitant]
  13. SIMVASTATIN [Concomitant]
  14. ASPIRIN [Concomitant]
  15. RECLAST (ZOLEDRONC ACID) [Concomitant]
  16. FOLIC ACID [Concomitant]
  17. MULTIVITAMIN (MVI) (VITAMINS NOS) [Concomitant]
  18. FISH OIL (FISH OIL) (FISH OIL) [Concomitant]
  19. VALTREX (VALACICLOVIR HYDROCHLORIDE) (VALACICLOVIR HYDROCHLORIDE) [Concomitant]
  20. ACYCLOVIR (ACICLOVIR) (ACICLOVIR) [Concomitant]
  21. NEURONTIN (GABAPENTIN) (GABAPENTIN) [Concomitant]
  22. TESSALON PERLES (BENZONATATE) (BENZONATATE) [Concomitant]
  23. MACROBID (NITROFURANTOIN) (NITROFURANTOIN) [Concomitant]
  24. Z-PACK (AZITHROMYCIN) (AZITHROMYCIN) [Concomitant]

REACTIONS (7)
  - TREMOR [None]
  - FEELING COLD [None]
  - CYSTITIS [None]
  - INFUSION RELATED REACTION [None]
  - Urinary tract infection [None]
  - Dysuria [None]
  - Pollakiuria [None]
